FAERS Safety Report 15743995 (Version 1)
Quarter: 2018Q4

REPORT INFORMATION
  Report Type: Report from Study
  Country: None (occurrence: BR)
  Receive Date: 20181220
  Receipt Date: 20181220
  Transmission Date: 20190205
  Serious: Yes (Other)
  Sender: FDA-Public Use
  Company Number: BR-ABBVIE-18K-020-2592520-00

PATIENT
  Sex: Female

DRUGS (3)
  1. HUMIRA [Suspect]
     Active Substance: ADALIMUMAB
     Route: 058
  2. HUMIRA [Suspect]
     Active Substance: ADALIMUMAB
     Indication: RHEUMATOID ARTHRITIS
     Route: 058
  3. LUFTAL [Concomitant]
     Active Substance: DIMETHICONE
     Indication: FLATULENCE
     Dosage: AS REQUIRED.

REACTIONS (10)
  - Depression [Unknown]
  - Impaired healing [Unknown]
  - Appendicitis [Unknown]
  - Malaise [Unknown]
  - Vascular procedure complication [Unknown]
  - Procedural haemorrhage [Unknown]
  - Fear [Unknown]
  - Gastrointestinal procedural complication [Unknown]
  - Post procedural discharge [Recovered/Resolved]
  - Abdominal pain [Unknown]
